FAERS Safety Report 4842278-6 (Version None)
Quarter: 2005Q4

REPORT INFORMATION
  Report Type: 
  Country: None (occurrence: None)
  Receive Date: 20051129
  Receipt Date: 20051114
  Transmission Date: 20060501
  Serious: Yes (Hospitalization)
  Sender: FDA-Public Use
  Company Number: 2005BI019475

PATIENT
  Age: 74 Year
  Sex: Female

DRUGS (3)
  1. AVONEX [Suspect]
     Indication: MULTIPLE SCLEROSIS
     Dosage: 30 UG; QW; IM
     Route: 030
     Dates: start: 20000801
  2. ZOCOR [Concomitant]
  3. ATENOLOL [Concomitant]

REACTIONS (4)
  - CEREBROVASCULAR ACCIDENT [None]
  - DYSARTHRIA [None]
  - MENTAL IMPAIRMENT [None]
  - SPEECH DISORDER [None]
